FAERS Safety Report 9229486 (Version 2)
Quarter: 2013Q4

REPORT INFORMATION
  Report Type: Spontaneous
  Country: GB (occurrence: US)
  Receive Date: 20130412
  Receipt Date: 20131025
  Transmission Date: 20140711
  Serious: Yes (Hospitalization, Other)
  Sender: FDA-Public Use
  Company Number: US-B.I. PHARMACEUTICALS,INC./RIDGEFIELD-2013-BI-10119YA

PATIENT
  Age: 77 Year
  Sex: Male

DRUGS (6)
  1. CLENIL MODULITE [Suspect]
     Indication: ASTHMA
     Dosage: 400 MCG
     Dates: start: 20130219
  2. LEVOTHYROXINE [Suspect]
     Indication: HYPOTHYROIDISM
     Dosage: 150 MCG
  3. VERAPAMIL [Suspect]
     Indication: ATRIAL FIBRILLATION
     Dosage: 240 MG
  4. WARFARIN [Suspect]
     Indication: ATRIAL FIBRILLATION
  5. OCUVITE [Concomitant]
  6. TAMSULOSINA [Suspect]
     Indication: PROSTATOMEGALY
     Dosage: 400 MCG
     Route: 065

REACTIONS (5)
  - Drug interaction [Unknown]
  - Haemorrhage [Unknown]
  - International normalised ratio decreased [Unknown]
  - Cerebrovascular accident [Unknown]
  - Therapeutic response unexpected [Unknown]
